FAERS Safety Report 8080064-7 (Version None)
Quarter: 2012Q1

REPORT INFORMATION
  Report Type: 
  Country: None (occurrence: None)
  Receive Date: 20120128
  Receipt Date: 20110823
  Transmission Date: 20120608
  Serious: No
  Sender: FDA-Public Use
  Company Number: US-ABBOTT-11P-163-0848830-00

PATIENT
  Age: 67 Year
  Sex: Female

DRUGS (7)
  1. MAXZIDE [Concomitant]
     Indication: HYPERTENSION
     Dosage: DAILY FOR YEARS
  2. ACIPHEX [Concomitant]
     Indication: ILL-DEFINED DISORDER
     Dosage: DAILY
  3. ATENOLOL [Concomitant]
     Indication: HYPERTENSION
  4. CENESTIN [Concomitant]
     Indication: HOT FLUSH
     Dosage: DAILY FOR 40 YEARS
  5. ASTEPRO [Concomitant]
     Indication: SEASONAL ALLERGY
  6. M.V.I. [Concomitant]
     Indication: PRODUCT USED FOR UNKNOWN INDICATION
  7. HUMIRA [Suspect]
     Indication: CROHN'S DISEASE
     Dates: start: 20080201

REACTIONS (4)
  - INJECTION SITE HAEMATOMA [None]
  - INJECTION SITE PAIN [None]
  - DEVICE MALFUNCTION [None]
  - DRUG DOSE OMISSION [None]
